FAERS Safety Report 20795743 (Version 2)
Quarter: 2022Q2

REPORT INFORMATION
  Report Type: Spontaneous
  Country: JP (occurrence: JP)
  Receive Date: 20220506
  Receipt Date: 20220512
  Transmission Date: 20220721
  Serious: Yes (Other)
  Sender: FDA-Public Use
  Company Number: JP-NOVARTISPH-NVSJ2022JP089582

PATIENT
  Age: 72 Year
  Sex: Male

DRUGS (1)
  1. AMOXICILLIN [Suspect]
     Active Substance: AMOXICILLIN
     Indication: Actinomycosis
     Dosage: 750 MG, QD
     Route: 048

REACTIONS (2)
  - Renal impairment [Unknown]
  - Product use in unapproved indication [Unknown]
